FAERS Safety Report 18894768 (Version 2)
Quarter: 2021Q1

REPORT INFORMATION
  Report Type: Spontaneous
  Country: ES (occurrence: ES)
  Receive Date: 20210216
  Receipt Date: 20210217
  Transmission Date: 20210420
  Serious: Yes (Hospitalization)
  Sender: FDA-Public Use
  Company Number: ES-JNJFOC-20210218037

PATIENT
  Age: 87 Year
  Sex: Female

DRUGS (8)
  1. GABAPENTINA [Suspect]
     Active Substance: GABAPENTIN
     Indication: PAIN
     Route: 048
     Dates: start: 20210109
  2. RISPERDAL [Suspect]
     Active Substance: RISPERIDONE
     Indication: AGITATION
     Route: 048
     Dates: start: 20210126
  3. METAMIZOLE [Concomitant]
     Active Substance: METAMIZOLE
     Route: 065
  4. OMEPRAZOLE. [Concomitant]
     Active Substance: OMEPRAZOLE
     Route: 065
  5. TRAZODONE [Suspect]
     Active Substance: TRAZODONE HYDROCHLORIDE
     Indication: INSOMNIA
     Route: 048
     Dates: start: 20210126
  6. COLECALCIFEROL [Concomitant]
     Active Substance: CHOLECALCIFEROL
  7. MORFINA [MORPHINE] [Suspect]
     Active Substance: MORPHINE
     Indication: PAIN
     Route: 065
     Dates: start: 20191021
  8. CLOTRIMAZOL [Concomitant]
     Active Substance: CLOTRIMAZOLE
     Dosage: 10 MG/G
     Route: 065

REACTIONS (1)
  - Hypoxic-ischaemic encephalopathy [Recovering/Resolving]

NARRATIVE: CASE EVENT DATE: 20210127
